FAERS Safety Report 4930153-8 (Version None)
Quarter: 2006Q1

REPORT INFORMATION
  Report Type: 
  Country: None (occurrence: None)
  Receive Date: 20060302
  Receipt Date: 20060220
  Transmission Date: 20060701
  Serious: Yes (Other)
  Sender: FDA-Public Use
  Company Number: PHBS2006MX03092

PATIENT
  Sex: Female
  Weight: 2.45 kg

DRUGS (1)
  1. TRILEPTAL [Suspect]
     Route: 064

REACTIONS (4)
  - DRUG EXPOSURE DURING PREGNANCY [None]
  - JAUNDICE [None]
  - PREMATURE BABY [None]
  - PULMONARY OEDEMA [None]
